FAERS Safety Report 25927925 (Version 1)
Quarter: 2025Q4

REPORT INFORMATION
  Report Type: Spontaneous
  Country: CA (occurrence: CA)
  Receive Date: 20251016
  Receipt Date: 20251016
  Transmission Date: 20260118
  Serious: Yes (Other)
  Sender: CELLTRION
  Company Number: CA-CELLTRION INC.-2025CA036679

PATIENT

DRUGS (2)
  1. INFLIXIMAB [Suspect]
     Active Substance: INFLIXIMAB
     Indication: Behcet^s syndrome
     Dosage: 5 MG/KG
     Route: 042
  2. METHOTREXATE SODIUM [Suspect]
     Active Substance: METHOTREXATE SODIUM
     Indication: Behcet^s syndrome
     Dosage: 20 MILLIGRAM
     Route: 058

REACTIONS (5)
  - Condition aggravated [Not Recovered/Not Resolved]
  - Umbilical hernia [Not Recovered/Not Resolved]
  - Mesenteric artery stenosis [Not Recovered/Not Resolved]
  - Ileal ulcer [Not Recovered/Not Resolved]
  - Intentional product use issue [Unknown]
